FAERS Safety Report 6559007-0 (Version None)
Quarter: 2010Q1

REPORT INFORMATION
  Report Type: 
  Country: None (occurrence: None)
  Receive Date: 20100129
  Receipt Date: 20100125
  Transmission Date: 20100710
  Serious: Yes (Hospitalization)
  Sender: FDA-Public Use
  Company Number: TR-ELI_LILLY_AND_COMPANY-TR201001005495

PATIENT
  Age: 47 Year
  Sex: Male

DRUGS (4)
  1. HUMALOG [Suspect]
     Indication: DIABETES MELLITUS
     Dosage: 24 U, 3/D
     Route: 058
     Dates: start: 20080101
  2. LEVEMIR [Concomitant]
     Dosage: 36 U, DAILY (1/D)
     Route: 058
  3. NEURONTIN [Concomitant]
     Dosage: UNK, 3/D
     Route: 048
  4. GLIFOR [Concomitant]
     Dosage: UNK, 3/D
     Route: 048

REACTIONS (2)
  - BLOOD GLUCOSE INCREASED [None]
  - WOUND [None]
